FAERS Safety Report 10182129 (Version 1)
Quarter: 2014Q2

REPORT INFORMATION
  Report Type: Report from Study
  Country: FR (occurrence: FR)
  Receive Date: 20140520
  Receipt Date: 20140520
  Transmission Date: 20141212
  Serious: Yes (Hospitalization)
  Sender: FDA-Public Use
  Company Number: FR-ROCHE-1402792

PATIENT
  Sex: Male

DRUGS (13)
  1. RITUXIMAB [Suspect]
     Indication: RHEUMATOID ARTHRITIS
     Route: 041
     Dates: start: 20080701
  2. RITUXIMAB [Suspect]
     Route: 041
     Dates: start: 20080715
  3. RITUXIMAB [Suspect]
     Route: 041
     Dates: start: 20090223
  4. RITUXIMAB [Suspect]
     Route: 041
     Dates: start: 20090309
  5. RITUXIMAB [Suspect]
     Route: 041
     Dates: start: 20100223
  6. RITUXIMAB [Suspect]
     Route: 041
     Dates: start: 20100309
  7. RITUXIMAB [Suspect]
     Route: 041
     Dates: start: 20101206
  8. RITUXIMAB [Suspect]
     Route: 041
     Dates: start: 20101220
  9. RITUXIMAB [Suspect]
     Route: 041
     Dates: start: 20120604
  10. RITUXIMAB [Suspect]
     Route: 041
     Dates: start: 20130603
  11. SALAZOPRIN [Concomitant]
     Route: 065
  12. SALAZOPRIN [Concomitant]
     Route: 065
  13. CORTANCYL [Concomitant]
     Route: 065

REACTIONS (8)
  - Hypertension [Recovered/Resolved]
  - Dyspnoea exertional [Unknown]
  - Renal colic [Recovered/Resolved]
  - Adrenal mass [Recovered/Resolved]
  - Skin exfoliation [Unknown]
  - Folliculitis [Recovered/Resolved]
  - Glossitis [Recovered/Resolved]
  - Psoriasis [Not Recovered/Not Resolved]
